FAERS Safety Report 21401195 (Version 3)
Quarter: 2022Q4

REPORT INFORMATION
  Report Type: Spontaneous
  Country: NL (occurrence: NL)
  Receive Date: 20221003
  Receipt Date: 20221206
  Transmission Date: 20230113
  Serious: Yes (Hospitalization, Other)
  Sender: FDA-Public Use
  Company Number: NL-LRB-00829501

PATIENT
  Age: 62 Year
  Sex: Male

DRUGS (5)
  1. RAMIPRIL [Suspect]
     Active Substance: RAMIPRIL
     Indication: Hypertension
     Dosage: 2.5 MILLIGRAM, ONCE A DAY (1 X PER DAY 1 PIECE)
     Route: 048
     Dates: start: 20210301
  2. BISOPROLOL FUMARATE [Suspect]
     Active Substance: BISOPROLOL FUMARATE
     Indication: Atrial fibrillation
     Dosage: UNK, ONCE A DAY
     Route: 065
  3. SIMVASTATIN [Suspect]
     Active Substance: SIMVASTATIN
     Indication: Disease risk factor
     Dosage: 40 MILLIGRAM, ONCE A DAY (1 X PER DAY 1 PIECE)
     Route: 048
     Dates: start: 20201201
  4. ASTRAZENECA COVID-19 VACCINE [Suspect]
     Active Substance: AZD-1222
     Indication: COVID-19 immunisation
     Dosage: 1 DOSAGE FORM
     Route: 065
     Dates: start: 20210420
  5. RIVAROXABAN [Concomitant]
     Active Substance: RIVAROXABAN
     Indication: Product used for unknown indication
     Dosage: 20 MILLIGRAM (TABLET, 20 MG (MILLIGRAM)
     Route: 065

REACTIONS (2)
  - Guillain-Barre syndrome [Unknown]
  - Myalgia [Unknown]

NARRATIVE: CASE EVENT DATE: 20210427
